FAERS Safety Report 6554857-9 (Version None)
Quarter: 2010Q1

REPORT INFORMATION
  Report Type: 
  Country: None (occurrence: None)
  Receive Date: 20100125
  Receipt Date: 20100108
  Transmission Date: 20100710
  Serious: Yes (Hospitalization)
  Sender: FDA-Public Use
  Company Number: 2010BM000009

PATIENT
  Age: 20 Year
  Sex: Female

DRUGS (2)
  1. KUVAN [Suspect]
     Indication: PHENYLKETONURIA
     Dosage: PO; PO
     Route: 048
     Dates: end: 20091225
  2. KUVAN [Suspect]
     Indication: PHENYLKETONURIA
     Dosage: PO; PO
     Route: 048
     Dates: start: 20100101

REACTIONS (1)
  - APPENDICECTOMY [None]
